FAERS Safety Report 6654202-4 (Version None)
Quarter: 2010Q1

REPORT INFORMATION
  Report Type: 
  Country: None (occurrence: None)
  Receive Date: 20100326
  Receipt Date: 20100318
  Transmission Date: 20100710
  Serious: Yes (Hospitalization)
  Sender: FDA-Public Use
  Company Number: CA-AMGEN-KDL399867

PATIENT
  Sex: Male
  Weight: 90.8 kg

DRUGS (2)
  1. ENBREL [Suspect]
     Indication: RHEUMATOID ARTHRITIS
     Route: 058
     Dates: start: 20090201, end: 20100201
  2. METHOTREXATE [Suspect]
     Dates: start: 20090201, end: 20100201

REACTIONS (1)
  - PNEUMOCYSTIS JIROVECI PNEUMONIA [None]
